FAERS Safety Report 13240833 (Version 1)
Quarter: 2017Q1

REPORT INFORMATION
  Report Type: Spontaneous
  Country: AT (occurrence: AT)
  Receive Date: 20170216
  Receipt Date: 20170216
  Transmission Date: 20170428
  Serious: Yes (Death)
  Sender: FDA-Public Use
  Company Number: AT-JNJFOC-20170212601

PATIENT

DRUGS (1)
  1. HALOPERIDOL. [Suspect]
     Active Substance: HALOPERIDOL
     Indication: MENTAL DISORDER
     Route: 065

REACTIONS (1)
  - Embolism venous [Fatal]
